FAERS Safety Report 13711804 (Version 1)
Quarter: 2017Q3

REPORT INFORMATION
  Report Type: Spontaneous
  Country: US (occurrence: US)
  Receive Date: 20170703
  Receipt Date: 20170703
  Transmission Date: 20171127
  Serious: Yes (Hospitalization)
  Sender: FDA-Public Use
  Company Number: None

PATIENT
  Age: 35 Year
  Sex: Female

DRUGS (1)
  1. DILAUDID [Suspect]
     Active Substance: HYDROMORPHONE HYDROCHLORIDE

REACTIONS (4)
  - Somnolence [None]
  - Oxygen saturation decreased [None]
  - Respiratory rate decreased [None]
  - Therapy cessation [None]

NARRATIVE: CASE EVENT DATE: 20170619
